FAERS Safety Report 12873551 (Version 1)
Quarter: 2016Q4

REPORT INFORMATION
  Report Type: Spontaneous
  Country: US (occurrence: US)
  Receive Date: 20161021
  Receipt Date: 20161021
  Transmission Date: 20170207
  Serious: No
  Sender: FDA-Public Use
  Company Number: US-AMNEAL PHARMACEUTICALS-2016AMN00377

PATIENT
  Age: 2 Year
  Sex: Male
  Weight: 17.23 kg

DRUGS (2)
  1. OXCARBAZEPINE. [Suspect]
     Active Substance: OXCARBAZEPINE
     Indication: PROPHYLAXIS
     Dosage: 3 ML, 2X/DAY
     Route: 048
     Dates: start: 201509
  2. ALLERGY MEDICINE [Concomitant]
     Active Substance: DIPHENHYDRAMINE HYDROCHLORIDE
     Indication: HYPERSENSITIVITY

REACTIONS (2)
  - Rash [Unknown]
  - Dysphagia [Unknown]

NARRATIVE: CASE EVENT DATE: 201603
